FAERS Safety Report 11379693 (Version 1)
Quarter: 2015Q3

REPORT INFORMATION
  Report Type: Spontaneous
  Country: US (occurrence: US)
  Receive Date: 20150814
  Receipt Date: 20150814
  Transmission Date: 20151125
  Serious: No
  Sender: FDA-Public Use
  Company Number: US-ORCHID HEALTHCARE-1041090

PATIENT
  Age: 52 Year
  Sex: Female
  Weight: 65.91 kg

DRUGS (1)
  1. TERBINAFINE HYDROCHLORIDE. [Suspect]
     Active Substance: TERBINAFINE HYDROCHLORIDE
     Indication: ONYCHOMYCOSIS
     Route: 048
     Dates: start: 201411, end: 201411

REACTIONS (2)
  - Viral infection [Recovering/Resolving]
  - Viral rash [Recovering/Resolving]

NARRATIVE: CASE EVENT DATE: 2014
